FAERS Safety Report 17225603 (Version 1)
Quarter: 2020Q1

REPORT INFORMATION
  Report Type: Spontaneous
  Country: JP (occurrence: JP)
  Receive Date: 20200102
  Receipt Date: 20200102
  Transmission Date: 20200409
  Serious: Yes (Other)
  Sender: FDA-Public Use
  Company Number: JP-BAYER-2019-236309

PATIENT
  Age: 27 Year
  Sex: Female

DRUGS (3)
  1. YAZ [Suspect]
     Active Substance: DROSPIRENONE\ETHINYL ESTRADIOL
     Dosage: 1 DF, QD
     Route: 048
     Dates: start: 20191220, end: 20191220
  2. FREWELL [Concomitant]
     Dosage: UNK
     Route: 048
     Dates: start: 20191218, end: 20191219
  3. FREWELL [Concomitant]
     Dosage: UNK
     Route: 048
     Dates: start: 20191105, end: 20191118

REACTIONS (8)
  - Rhabdomyolysis [None]
  - Muscle fatigue [None]
  - Intentional product misuse [None]
  - Inappropriate schedule of product administration [None]
  - Oedema peripheral [None]
  - Headache [None]
  - Product prescribing issue [None]
  - Hypoaesthesia [None]

NARRATIVE: CASE EVENT DATE: 20191220
